FAERS Safety Report 4780234-7 (Version None)
Quarter: 2005Q3

REPORT INFORMATION
  Report Type: 
  Country: None (occurrence: None)
  Receive Date: 20050927
  Receipt Date: 20050926
  Transmission Date: 20060218
  Serious: Yes (Death, Other)
  Sender: FDA-Public Use
  Company Number: JP-SANOFI-SYNTHELABO-F01200501957

PATIENT
  Sex: Female
  Weight: 45 kg

DRUGS (7)
  1. OXALIPLATIN [Suspect]
     Indication: COLON CANCER
     Dosage: 118.2 MG
     Route: 042
     Dates: start: 20050513, end: 20050527
  2. OXALIPLATIN [Suspect]
     Dosage: 110 MG
     Route: 042
     Dates: start: 20050610, end: 20050805
  3. FLUOROURACIL [Suspect]
     Indication: COLON CANCER
     Dosage: 556 MG BOLUS AND THEN 1112 MG CONTINUOUS
     Route: 042
     Dates: start: 20050513, end: 20050514
  4. FLUOROURACIL [Suspect]
     Dosage: 556 MG BOLUS AND THEN 834 MG CONTINUOUS
     Route: 042
     Dates: start: 20050527, end: 20050528
  5. FLUOROURACIL [Suspect]
     Dosage: 500 MG BOLUS AND THEN 800 MG CONTINUOUS
     Route: 042
     Dates: start: 20050610, end: 20050806
  6. CALCIUM LEVOFOLINATE [Suspect]
     Indication: COLON CANCER
     Dosage: 139 MG
     Route: 042
     Dates: start: 20050513, end: 20050528
  7. CALCIUM LEVOFOLINATE [Suspect]
     Dosage: 125 MG
     Route: 042
     Dates: start: 20050610, end: 20050806

REACTIONS (3)
  - LEUKOPENIA [None]
  - PNEUMONIA [None]
  - TREMOR [None]
